FAERS Safety Report 6433096-6 (Version None)
Quarter: 2009Q4

REPORT INFORMATION
  Report Type: 
  Country: None (occurrence: None)
  Receive Date: 20091105
  Receipt Date: 20091030
  Transmission Date: 20100525
  Serious: Yes (Hospitalization)
  Sender: FDA-Public Use
  Company Number: 2009SP033890

PATIENT
  Age: 65 Year
  Sex: Male
  Weight: 82.2 kg

DRUGS (1)
  1. INTRON A [Suspect]
     Indication: DRUG USE FOR UNKNOWN INDICATION
     Dosage: 12.5 MIU;
     Dates: start: 20090420, end: 20091014

REACTIONS (1)
  - FOOT FRACTURE [None]
